FAERS Safety Report 17679605 (Version 1)
Quarter: 2020Q2

REPORT INFORMATION
  Report Type: Spontaneous
  Country: CA (occurrence: CA)
  Receive Date: 20200417
  Receipt Date: 20200417
  Transmission Date: 20200714
  Serious: Yes (Other)
  Sender: FDA-Public Use
  Company Number: CA-TEVA-2020-CA-1223424

PATIENT
  Age: 10 Year
  Sex: Male

DRUGS (9)
  1. VALPROIC ACID. [Suspect]
     Active Substance: VALPROIC ACID
     Indication: PARTIAL SEIZURES
     Route: 065
  2. IMMUNOGLOBULIN G(HUMAN) [Concomitant]
  3. ACYCLOVIR. [Concomitant]
     Active Substance: ACYCLOVIR
  4. CEFTRIAXONE. [Concomitant]
     Active Substance: CEFTRIAXONE
  5. METHYLPREDNISOLONE. [Concomitant]
     Active Substance: METHYLPREDNISOLONE
  6. VANCOMYCIN [Concomitant]
     Active Substance: VANCOMYCIN
  7. LEVETIRACETAM. [Suspect]
     Active Substance: LEVETIRACETAM
     Indication: PRODUCT USED FOR UNKNOWN INDICATION
     Route: 065
  8. PHENOBARBITAL. [Suspect]
     Active Substance: PHENOBARBITAL
     Indication: PARTIAL SEIZURES
     Route: 042
  9. LORAZEPAM. [Suspect]
     Active Substance: LORAZEPAM
     Indication: PARTIAL SEIZURES
     Route: 065

REACTIONS (7)
  - Seizure [Unknown]
  - Product use issue [Unknown]
  - Rash maculo-papular [Unknown]
  - Status epilepticus [Unknown]
  - Eosinophilia [Unknown]
  - Off label use [Unknown]
  - Drug ineffective [Unknown]
